FAERS Safety Report 24795384 (Version 1)
Quarter: 2024Q4

REPORT INFORMATION
  Report Type: Spontaneous
  Country: FR (occurrence: FR)
  Receive Date: 20241231
  Receipt Date: 20241231
  Transmission Date: 20250115
  Serious: Yes (Hospitalization)
  Sender: MYLAN
  Company Number: None

PATIENT
  Age: 44 Year
  Sex: Male
  Weight: 75 kg

DRUGS (1)
  1. CETIRIZINE [Suspect]
     Active Substance: CETIRIZINE HYDROCHLORIDE
     Indication: Rhinitis allergic
     Dosage: 1 DOSAGE FORM, QD
     Route: 048
     Dates: start: 20230527, end: 20230527

REACTIONS (1)
  - Fixed eruption [Recovering/Resolving]

NARRATIVE: CASE EVENT DATE: 20230529
